FAERS Safety Report 6198782-4 (Version None)
Quarter: 2009Q2

REPORT INFORMATION
  Report Type: 
  Country: None (occurrence: None)
  Receive Date: 20090521
  Receipt Date: 20090513
  Transmission Date: 20091009
  Serious: Yes (Hospitalization, Disabling, Other)
  Sender: FDA-Public Use
  Company Number: US-MERCK-0708USA00138

PATIENT
  Age: 67 Year
  Sex: Female

DRUGS (4)
  1. FOSAMAX [Suspect]
     Indication: PROPHYLAXIS
     Route: 048
     Dates: start: 20020528, end: 20051126
  2. ZOCOR [Concomitant]
     Indication: BLOOD CHOLESTEROL INCREASED
     Route: 048
     Dates: start: 20011017
  3. ACTONEL [Concomitant]
     Indication: COMPRESSION FRACTURE
     Route: 065
     Dates: start: 20020410, end: 20020528
  4. ACTONEL [Concomitant]
     Indication: INTERVERTEBRAL DISC DEGENERATION
     Route: 065
     Dates: start: 20020410, end: 20020528

REACTIONS (35)
  - ABSCESS [None]
  - ALPHA HAEMOLYTIC STREPTOCOCCAL INFECTION [None]
  - ANXIETY [None]
  - AORTIC ANEURYSM [None]
  - BACK PAIN [None]
  - BAROTITIS MEDIA [None]
  - BAROTRAUMA [None]
  - BETA HAEMOLYTIC STREPTOCOCCAL INFECTION [None]
  - CARDIAC DISORDER [None]
  - CHRONIC OBSTRUCTIVE PULMONARY DISEASE [None]
  - CONTUSION [None]
  - DEAFNESS [None]
  - DENTAL CARIES [None]
  - DEPRESSION [None]
  - DYSPHONIA [None]
  - EAR DISORDER [None]
  - EDENTULOUS [None]
  - GINGIVAL DISORDER [None]
  - HAEMATOTYMPANUM [None]
  - IMPAIRED HEALING [None]
  - INCISIONAL HERNIA [None]
  - INFECTION [None]
  - ORAL INFECTION [None]
  - OROPHARYNGEAL PAIN [None]
  - OSTEOMYELITIS [None]
  - OSTEONECROSIS [None]
  - OSTEOPOROSIS [None]
  - PAIN IN EXTREMITY [None]
  - PERIODONTAL DISEASE [None]
  - PERIPHERAL VASCULAR DISORDER [None]
  - POOR PERIPHERAL CIRCULATION [None]
  - PURULENCE [None]
  - SUBCLAVIAN STEAL SYNDROME [None]
  - TINNITUS [None]
  - VERTEBROPLASTY [None]
